FAERS Safety Report 9259950 (Version 1)
Quarter: 2013Q2

REPORT INFORMATION
  Report Type: Spontaneous
  Country: GB (occurrence: GB)
  Receive Date: 20130429
  Receipt Date: 20130429
  Transmission Date: 20140414
  Serious: Yes (Hospitalization, Other)
  Sender: FDA-Public Use
  Company Number: GB-JNJFOC-20130411401

PATIENT
  Age: 19 Year
  Sex: Male
  Weight: 69.85 kg

DRUGS (13)
  1. HALOPERIDOL [Suspect]
     Indication: ASPERGER^S DISORDER
     Route: 048
     Dates: start: 20090101
  2. HALOPERIDOL [Suspect]
     Indication: SCHIZOPHRENIA
     Route: 048
     Dates: start: 20090101
  3. ARIPIPRAZOLE [Suspect]
     Indication: SCHIZOPHRENIA
     Route: 048
     Dates: start: 20090101
  4. ARIPIPRAZOLE [Suspect]
     Indication: ASPERGER^S DISORDER
     Route: 048
     Dates: start: 20090101
  5. DIAZEPAM [Suspect]
     Indication: SCHIZOPHRENIA
     Route: 048
     Dates: start: 20090101
  6. DIAZEPAM [Suspect]
     Indication: ASPERGER^S DISORDER
     Route: 048
     Dates: start: 20090101
  7. LORAZEPAM [Suspect]
     Indication: PRODUCT USED FOR UNKNOWN INDICATION
     Route: 048
     Dates: start: 20090102
  8. PROCYCLIDINE [Suspect]
     Indication: SCHIZOPHRENIA
     Route: 048
     Dates: start: 20090101
  9. PROCYCLIDINE [Suspect]
     Indication: ASPERGER^S DISORDER
     Route: 048
     Dates: start: 20090101
  10. PROPRANOLOL [Suspect]
     Indication: ASPERGER^S DISORDER
     Route: 048
  11. PROPRANOLOL [Suspect]
     Indication: ASPERGER^S DISORDER
     Route: 048
     Dates: start: 20090101
  12. PROPRANOLOL [Suspect]
     Indication: SCHIZOPHRENIA
     Route: 048
  13. PROPRANOLOL [Suspect]
     Indication: SCHIZOPHRENIA
     Route: 048
     Dates: start: 20090101

REACTIONS (17)
  - Aggression [Not Recovered/Not Resolved]
  - Dyspnoea [Not Recovered/Not Resolved]
  - Anxiety [Not Recovered/Not Resolved]
  - Back pain [Not Recovered/Not Resolved]
  - Blister [Not Recovered/Not Resolved]
  - Vision blurred [Not Recovered/Not Resolved]
  - Chest pain [Not Recovered/Not Resolved]
  - Feeling hot [Not Recovered/Not Resolved]
  - Alopecia [Not Recovered/Not Resolved]
  - Headache [Not Recovered/Not Resolved]
  - Increased appetite [Not Recovered/Not Resolved]
  - Rash [Not Recovered/Not Resolved]
  - Erythema [Not Recovered/Not Resolved]
  - Stress [Not Recovered/Not Resolved]
  - Local swelling [Not Recovered/Not Resolved]
  - Local swelling [Not Recovered/Not Resolved]
  - Weight increased [Not Recovered/Not Resolved]
